FAERS Safety Report 16804719 (Version 1)
Quarter: 2019Q3

REPORT INFORMATION
  Report Type: Spontaneous
  Country: SE (occurrence: SE)
  Receive Date: 20190913
  Receipt Date: 20190913
  Transmission Date: 20191005
  Serious: Yes (Hospitalization)
  Sender: FDA-Public Use
  Company Number: SE-TEVA-2019-SE-1106002

PATIENT
  Age: 61 Year
  Sex: Female

DRUGS (5)
  1. BISOPROLOL [Suspect]
     Active Substance: BISOPROLOL
     Dosage: 10MG
     Route: 048
     Dates: start: 20190213, end: 20190213
  2. ANTABUS [Suspect]
     Active Substance: DISULFIRAM
     Dosage: ^2 ANTABUS^
     Route: 048
     Dates: start: 20190213, end: 20190213
  3. LERGIGAN (PROMETHAZINE HYDROCHLORIDE) [Suspect]
     Active Substance: PROMETHAZINE HYDROCHLORIDE
     Dosage: ^10 LERGIGAN^
     Route: 048
     Dates: start: 20190213, end: 20190213
  4. PROPAVAN [Suspect]
     Active Substance: PROPIOMAZINE
     Dosage: 6 ST
     Route: 048
     Dates: start: 20190213, end: 20190213
  5. IMOVANE [Suspect]
     Active Substance: ZOPICLONE
     Route: 048
     Dates: start: 20190213, end: 20190213

REACTIONS (4)
  - Intentional overdose [Unknown]
  - Somnolence [Unknown]
  - Dizziness [Unknown]
  - Intentional self-injury [Unknown]

NARRATIVE: CASE EVENT DATE: 201902
